FAERS Safety Report 21859782 (Version 3)
Quarter: 2023Q1

REPORT INFORMATION
  Report Type: Spontaneous
  Country: GR (occurrence: GR)
  Receive Date: 20230113
  Receipt Date: 20230214
  Transmission Date: 20230418
  Serious: Yes (Death, Life-Threatening, Hospitalization, Other)
  Sender: FDA-Public Use
  Company Number: GR-ALXN-A202300379

PATIENT
  Sex: Female
  Weight: 9 kg

DRUGS (9)
  1. SOLIRIS [Suspect]
     Active Substance: ECULIZUMAB
     Indication: Thrombotic microangiopathy
     Dosage: 300 MG, QW
     Route: 065
     Dates: start: 20220521, end: 20220702
  2. SOLIRIS [Suspect]
     Active Substance: ECULIZUMAB
     Dosage: 300 MG, QW
     Route: 065
     Dates: start: 20221215, end: 20221223
  3. SOLIRIS [Suspect]
     Active Substance: ECULIZUMAB
     Indication: Off label use
     Dosage: 300 MG, Q2W
     Route: 065
     Dates: start: 20220718, end: 20220826
  4. SOLIRIS [Suspect]
     Active Substance: ECULIZUMAB
     Dosage: 300 MG, Q2W
     Route: 065
     Dates: start: 20221115
  5. CHOLECALCIFEROL [Concomitant]
     Active Substance: CHOLECALCIFEROL
     Indication: Product used for unknown indication
     Dosage: 400 UT, UNK
     Route: 065
     Dates: start: 20210706
  6. SODIUM CHLORIDE [Concomitant]
     Active Substance: SODIUM CHLORIDE
     Indication: Product used for unknown indication
     Dosage: 8 ML, TID
     Route: 042
     Dates: start: 202207
  7. NORVASC [Concomitant]
     Active Substance: AMLODIPINE BESYLATE
     Indication: Product used for unknown indication
     Dosage: 1.5 MG, BID
     Route: 065
     Dates: start: 202204
  8. SILDENAFIL [Concomitant]
     Active Substance: SILDENAFIL
     Indication: Product used for unknown indication
     Dosage: 5 MG, TID
     Route: 065
     Dates: start: 202211
  9. TENORMIN [Concomitant]
     Active Substance: ATENOLOL
     Indication: Product used for unknown indication
     Dosage: 14 MG, UNK
     Route: 065
     Dates: start: 202207

REACTIONS (7)
  - Cardio-respiratory arrest [Fatal]
  - Respiratory failure [Fatal]
  - Thrombotic microangiopathy [Fatal]
  - Disease recurrence [Fatal]
  - Pulmonary hypertension [Not Recovered/Not Resolved]
  - Pulmonary haemorrhage [Recovered/Resolved]
  - Off label use [Unknown]

NARRATIVE: CASE EVENT DATE: 20221115
